FAERS Safety Report 5322981-4 (Version None)
Quarter: 2007Q2

REPORT INFORMATION
  Report Type: 
  Country: None (occurrence: None)
  Receive Date: 20070215
  Receipt Date: 20060927
  Transmission Date: 20071010
  Serious: Yes (Disabling)
  Sender: FDA-Public Use
  Company Number: 200615908BWH

PATIENT
  Age: 52 Year
  Sex: Female

DRUGS (6)
  1. NEXAVAR [Suspect]
     Indication: RENAL CELL CARCINOMA STAGE UNSPECIFIED
     Dosage: 400 MG, BID, ORAL
     Route: 048
     Dates: start: 20060813
  2. INSULIN PUMP [Concomitant]
  3. LISINOPRIL [Concomitant]
  4. ASPIRIN [Concomitant]
  5. PAXIL [Concomitant]
  6. ZOFRAN [Concomitant]

REACTIONS (11)
  - ABASIA [None]
  - ANOREXIA [None]
  - BLISTER [None]
  - BLOOD GLUCOSE DECREASED [None]
  - HYPERKERATOSIS [None]
  - NAUSEA [None]
  - PALMAR-PLANTAR ERYTHRODYSAESTHESIA SYNDROME [None]
  - RASH GENERALISED [None]
  - SKIN LESION [None]
  - STOMATITIS [None]
  - WOUND [None]
